FAERS Safety Report 8920078 (Version 2)
Quarter: 2012Q4

REPORT INFORMATION
  Report Type: 
  Country: JP (occurrence: JP)
  Receive Date: 20121121
  Receipt Date: 20121225
  Transmission Date: 20130627
  Serious: Yes (Hospitalization)
  Sender: FDA-Public Use
  Company Number: JP-AMGEN-JPNSP2012074364

PATIENT
  Age: 76 Year
  Sex: Female

DRUGS (8)
  1. ENBREL [Suspect]
     Indication: RHEUMATOID ARTHRITIS
     Dosage: 25 mg, 1x/day
     Route: 058
     Dates: start: 20050817, end: 20121116
  2. RHEUMATREX                         /00113801/ [Concomitant]
     Dosage: UNK
  3. PREDONINE                          /00016201/ [Concomitant]
     Dosage: UNK
  4. VIVIANT [Concomitant]
     Dosage: UNK
  5. MEVALOTIN [Concomitant]
     Dosage: UNK
  6. CELECOX [Concomitant]
     Dosage: UNK
  7. OPALMON [Concomitant]
     Dosage: UNK
  8. FOLIAMIN [Concomitant]
     Dosage: UNK

REACTIONS (1)
  - Forearm fracture [Recovering/Resolving]
